FAERS Safety Report 9213196 (Version 1)
Quarter: 2013Q2

REPORT INFORMATION
  Report Type: Spontaneous
  Country: US (occurrence: None)
  Receive Date: 20130403
  Receipt Date: 20130403
  Transmission Date: 20140414
  Serious: Yes (Hospitalization, Other)
  Sender: FDA-Public Use
  Company Number: None

PATIENT
  Age: 33 Year
  Sex: Female
  Weight: 74.84 kg

DRUGS (1)
  1. Z-PAK [Suspect]
     Indication: BRONCHITIS
     Dates: start: 20130102, end: 20130106

REACTIONS (2)
  - Benign intracranial hypertension [None]
  - Tinnitus [None]
